FAERS Safety Report 22187108 (Version 1)
Quarter: 2023Q2

REPORT INFORMATION
  Report Type: Spontaneous
  Country: US (occurrence: None)
  Receive Date: 20230407
  Receipt Date: 20230407
  Transmission Date: 20230722
  Serious: Yes (Hospitalization, Other)
  Sender: FDA-Public Use
  Company Number: None

PATIENT
  Age: 29 Year
  Sex: Female
  Weight: 74.2 kg

DRUGS (4)
  1. INVEGA SUSTENNA [Suspect]
     Active Substance: PALIPERIDONE PALMITATE
     Indication: Delusion
     Dosage: OTHER FREQUENCY : ONCE;?
     Route: 030
     Dates: start: 20230322, end: 20230322
  2. INVEGA SUSTENNA [Suspect]
     Active Substance: PALIPERIDONE PALMITATE
     Indication: Hallucination
  3. INVEGA SUSTENNA [Suspect]
     Active Substance: PALIPERIDONE PALMITATE
     Indication: Delusion
     Dosage: OTHER FREQUENCY : ONCE;?
     Route: 030
     Dates: start: 20230328, end: 20230328
  4. INVEGA SUSTENNA [Suspect]
     Active Substance: PALIPERIDONE PALMITATE
     Indication: Hallucination

REACTIONS (5)
  - Drooling [None]
  - Rhabdomyolysis [None]
  - Neuromyopathy [None]
  - Neurotoxicity [None]
  - Gait disturbance [None]

NARRATIVE: CASE EVENT DATE: 20230330
